FAERS Safety Report 7491040-7 (Version None)
Quarter: 2011Q2

REPORT INFORMATION
  Report Type: 
  Country: None (occurrence: None)
  Receive Date: 20110517
  Receipt Date: 20110517
  Transmission Date: 20111010
  Serious: Yes (Hospitalization, Disabling)
  Sender: FDA-Public Use
  Company Number: None

PATIENT
  Age: 28 Year
  Sex: Female
  Weight: 72.5755 kg

DRUGS (1)
  1. CIPROFLOXACIN [Suspect]
     Indication: URINARY TRACT INFECTION BACTERIAL
     Dosage: 1 TABLET 2X DAILY
     Dates: start: 20100405, end: 20100510

REACTIONS (3)
  - JOINT DISLOCATION [None]
  - LIGAMENT RUPTURE [None]
  - TENDON RUPTURE [None]
